FAERS Safety Report 18596649 (Version 4)
Quarter: 2020Q4

REPORT INFORMATION
  Report Type: Report from Study
  Country: AU (occurrence: AU)
  Receive Date: 20201209
  Receipt Date: 20201222
  Transmission Date: 20210114
  Serious: Yes (Hospitalization)
  Sender: FDA-Public Use
  Company Number: AU-ROCHE-2725570

PATIENT
  Age: 51 Year
  Sex: Male
  Weight: 76.6 kg

DRUGS (10)
  1. ATEZOLIZUMAB. [Suspect]
     Active Substance: ATEZOLIZUMAB
     Indication: METASTATIC NEOPLASM
     Dosage: ON 30/NOV/2020, RECEIVED MOST RECENT DOSE OF ATEZOLIZUMAB, 1680 MG PRIOR TO AE.
     Route: 042
     Dates: start: 20201102
  2. DEXAMETHASONE. [Concomitant]
     Active Substance: DEXAMETHASONE
     Route: 048
     Dates: start: 20201202, end: 20201204
  3. MTIG 7192A [Suspect]
     Active Substance: TIRAGOLUMAB
     Indication: METASTATIC NEOPLASM
     Dosage: ON 30/NOV/2020, RECEIVED MOST RECENT DOSE OF MTIG7192A, 840 MG PRIOR TO AE.
     Route: 042
     Dates: start: 20201102
  4. NILSTAT [Concomitant]
     Active Substance: NYSTATIN
     Indication: INFECTIVE GLOSSITIS
     Route: 061
     Dates: start: 20201104, end: 20201130
  5. DEXAMETHASONE. [Concomitant]
     Active Substance: DEXAMETHASONE
     Indication: PHARYNGEAL SWELLING
     Route: 048
     Dates: start: 20201113, end: 20201122
  6. DEXAMETHASONE. [Concomitant]
     Active Substance: DEXAMETHASONE
     Route: 048
     Dates: start: 20201205, end: 20201207
  7. DEXAMETHASONE. [Concomitant]
     Active Substance: DEXAMETHASONE
     Route: 048
     Dates: start: 20201125, end: 20201126
  8. NASONEX [Concomitant]
     Active Substance: MOMETASONE FUROATE
     Indication: SEASONAL ALLERGY
     Dosage: 1 SPRAY
     Route: 061
     Dates: start: 2016
  9. DEXAMETHASONE. [Concomitant]
     Active Substance: DEXAMETHASONE
     Route: 048
     Dates: start: 20201123, end: 20201124
  10. DEXAMETHASONE. [Concomitant]
     Active Substance: DEXAMETHASONE
     Route: 048
     Dates: start: 20201129, end: 20201201

REACTIONS (1)
  - Swelling [Not Recovered/Not Resolved]

NARRATIVE: CASE EVENT DATE: 20201202
